FAERS Safety Report 6700255-4 (Version None)
Quarter: 2010Q2

REPORT INFORMATION
  Report Type: 
  Country: None (occurrence: None)
  Receive Date: 20100428
  Receipt Date: 20100420
  Transmission Date: 20101027
  Serious: Yes (Hospitalization)
  Sender: FDA-Public Use
  Company Number: US-PFIZER INC-2010049921

PATIENT
  Age: 74 Year
  Sex: Female
  Weight: 96.2 kg

DRUGS (1)
  1. SUNITINIB MALATE [Suspect]
     Indication: UTERINE CANCER
     Dosage: 50 MG, 1X/DAY FOR WEEKS 1-4 THEN 2 WEEKS REST
     Route: 048
     Dates: start: 20100217

REACTIONS (2)
  - GASTRITIS [None]
  - OESOPHAGITIS [None]
